FAERS Safety Report 10934748 (Version 1)
Quarter: 2015Q1

REPORT INFORMATION
  Report Type: Spontaneous
  Country: US (occurrence: US)
  Receive Date: 20150320
  Receipt Date: 20150320
  Transmission Date: 20150721
  Serious: No
  Sender: FDA-Public Use
  Company Number: US-GALDERMA-US15000105

PATIENT
  Age: 51 Year
  Sex: Female

DRUGS (6)
  1. DOVE BAR SOAP [Concomitant]
     Indication: THERAPEUTIC SKIN CARE TOPICAL
     Route: 061
  2. BARE MINERALS TONER [Concomitant]
     Route: 061
  3. MIRVASO [Suspect]
     Active Substance: BRIMONIDINE TARTRATE
     Indication: ROSACEA
     Dosage: 0.33%
     Route: 061
     Dates: start: 20150107, end: 20150107
  4. VITAMIN D [Concomitant]
     Active Substance: CHOLECALCIFEROL
     Indication: VITAMIN D DEFICIENCY
     Dosage: 2000 UNITS
     Route: 048
     Dates: start: 201409
  5. FISH OIL [Concomitant]
     Active Substance: FISH OIL
     Dosage: 1400 MG
     Route: 048
  6. MVI [Concomitant]
     Active Substance: VITAMINS
     Route: 048
     Dates: start: 201408

REACTIONS (3)
  - Rash erythematous [Recovered/Resolved]
  - Erythema [Recovered/Resolved]
  - Product use issue [Recovered/Resolved]

NARRATIVE: CASE EVENT DATE: 20150107
